FAERS Safety Report 12949866 (Version 2)
Quarter: 2016Q4

REPORT INFORMATION
  Report Type: Spontaneous
  Country: JP (occurrence: JP)
  Receive Date: 20161117
  Receipt Date: 20161128
  Transmission Date: 20170207
  Serious: Yes (Other)
  Sender: FDA-Public Use
  Company Number: JP-009507513-1611JPN006305

PATIENT
  Age: 40 Year
  Sex: Male

DRUGS (3)
  1. DEXAMETHASONE SODIUM PHOSPHATE. [Suspect]
     Active Substance: DEXAMETHASONE SODIUM PHOSPHATE
     Indication: INTERSTITIAL LUNG DISEASE
     Dosage: 4 MG, QD
     Route: 065
  2. LEVOFLOXACIN. [Suspect]
     Active Substance: LEVOFLOXACIN
     Indication: INTERSTITIAL LUNG DISEASE
     Dosage: UNK
     Route: 065
  3. PREDNISONE. [Suspect]
     Active Substance: PREDNISONE
     Indication: INTERSTITIAL LUNG DISEASE
     Dosage: 30 MG, QD
     Route: 065

REACTIONS (1)
  - Herpes zoster disseminated [Recovering/Resolving]
